FAERS Safety Report 6611365-4 (Version None)
Quarter: 2010Q1

REPORT INFORMATION
  Report Type: 
  Country: None (occurrence: None)
  Receive Date: 20100303
  Receipt Date: 20100218
  Transmission Date: 20100710
  Serious: Yes (Hospitalization, Other)
  Sender: FDA-Public Use
  Company Number: FR-BRISTOL-MYERS SQUIBB COMPANY-14992754

PATIENT
  Age: 71 Year
  Sex: Male

DRUGS (10)
  1. GLUCOPHAGE [Suspect]
     Indication: DIABETES MELLITUS
     Route: 048
     Dates: end: 20100125
  2. TRIATEC [Suspect]
     Dosage: TABS
     Route: 048
     Dates: end: 20100125
  3. LASIX [Suspect]
     Dosage: CAPS
     Dates: end: 20100125
  4. VISIPAQUE [Suspect]
     Indication: SCAN WITH CONTRAST
     Dates: start: 20100119, end: 20100119
  5. TAHOR [Suspect]
     Route: 048
     Dates: end: 20100125
  6. ISOPTIN [Concomitant]
     Dosage: TABS
  7. PLAVIX [Concomitant]
     Dosage: TABS
  8. CARDENSIEL [Concomitant]
  9. PREVISCAN [Concomitant]
  10. EXELON [Concomitant]

REACTIONS (8)
  - ABDOMINAL PAIN [None]
  - ANAEMIA MACROCYTIC [None]
  - CONFUSIONAL STATE [None]
  - DIARRHOEA [None]
  - GENERAL PHYSICAL HEALTH DETERIORATION [None]
  - HYPERKALAEMIA [None]
  - LACTIC ACIDOSIS [None]
  - RENAL FAILURE ACUTE [None]
